FAERS Safety Report 11173204 (Version 1)
Quarter: 2015Q2

REPORT INFORMATION
  Report Type: Spontaneous
  Country: US (occurrence: US)
  Receive Date: 20150608
  Receipt Date: 20150608
  Transmission Date: 20150821
  Serious: Yes (Other)
  Sender: FDA-Public Use
  Company Number: US-PFIZER INC-2015189851

PATIENT
  Age: 91 Year
  Sex: Female
  Weight: 64.85 kg

DRUGS (1)
  1. IBRANCE [Suspect]
     Active Substance: PALBOCICLIB
     Indication: BREAST CANCER
     Dosage: 125 MG, 1X/DAY (1-21 Q 28 DAYS)
     Route: 048
     Dates: start: 20150520

REACTIONS (1)
  - Oral pain [Recovering/Resolving]
